FAERS Safety Report 6062283-4 (Version None)
Quarter: 2009Q1

REPORT INFORMATION
  Report Type: 
  Country: None (occurrence: None)
  Receive Date: 20090203
  Receipt Date: 20090129
  Transmission Date: 20090719
  Serious: Yes (Hospitalization)
  Sender: FDA-Public Use
  Company Number: US-BRISTOL-MYERS SQUIBB COMPANY-14487490

PATIENT
  Age: 65 Year
  Sex: Female
  Weight: 66 kg

DRUGS (13)
  1. GLUCOPHAGE [Suspect]
     Indication: DIABETES MELLITUS
     Route: 048
     Dates: end: 20081201
  2. PENTASA [Suspect]
     Indication: CROHN'S DISEASE
     Route: 048
     Dates: start: 20080101
  3. ALLEGRA [Concomitant]
  4. FOLIC ACID [Concomitant]
  5. LEVOXYL [Concomitant]
     Route: 048
  6. NEXIUM [Concomitant]
  7. PERCOCET [Concomitant]
  8. STARLIX [Concomitant]
  9. ATENOLOL [Concomitant]
  10. ACETYLSALICYLIC ACID SRT [Concomitant]
  11. ZOCOR [Concomitant]
  12. LANTUS [Concomitant]
     Dates: start: 19930101
  13. BONIVA [Concomitant]
     Dates: start: 20080301

REACTIONS (5)
  - BETA HAEMOLYTIC STREPTOCOCCAL INFECTION [None]
  - PULMONARY EMBOLISM [None]
  - PYODERMA GANGRENOSUM [None]
  - RENAL FAILURE [None]
  - VASCULITIS [None]
